FAERS Safety Report 6005634-9 (Version None)
Quarter: 2008Q4

REPORT INFORMATION
  Report Type: 
  Country: None (occurrence: None)
  Receive Date: 20081215
  Receipt Date: 20081204
  Transmission Date: 20090506
  Serious: Yes (Hospitalization)
  Sender: FDA-Public Use
  Company Number: GXKR2008GR11603

PATIENT
  Age: 60 Year
  Sex: Female

DRUGS (1)
  1. DICLOFENAC (NGX) (DICLOFENAC) UNKNOWN [Suspect]
     Indication: PAIN
     Dosage: 100 MG/DAY

REACTIONS (4)
  - CONTUSION [None]
  - HAEMATOMA [None]
  - OEDEMA PERIPHERAL [None]
  - PAIN [None]
